FAERS Safety Report 9496181 (Version 2)
Quarter: 2013Q3

REPORT INFORMATION
  Report Type: Spontaneous
  Country: US (occurrence: US)
  Receive Date: 20130904
  Receipt Date: 20130920
  Transmission Date: 20140515
  Serious: Yes (Other)
  Sender: FDA-Public Use
  Company Number: US-BRISTOL-MYERS SQUIBB COMPANY-19243427

PATIENT
  Age: 69 Year
  Sex: Male
  Weight: 95.69 kg

DRUGS (9)
  1. COUMADIN [Suspect]
     Indication: ARRHYTHMIA
     Route: 048
  2. VOTRIENT [Suspect]
     Indication: RENAL CANCER
     Route: 048
     Dates: start: 201206
  3. GABAPENTIN [Concomitant]
  4. JANUVIA [Concomitant]
  5. LANOXIN [Concomitant]
  6. COREG [Concomitant]
  7. FUROSEMIDE [Concomitant]
  8. MULTIVITAMIN [Concomitant]
  9. VITAMIN D [Concomitant]

REACTIONS (6)
  - Haemorrhage subcutaneous [Not Recovered/Not Resolved]
  - Contusion [Not Recovered/Not Resolved]
  - Skin fragility [Recovering/Resolving]
  - Impaired healing [Recovering/Resolving]
  - Diarrhoea [Recovering/Resolving]
  - Asthenia [Recovering/Resolving]
